FAERS Safety Report 8987077 (Version 1)
Quarter: 2012Q4

REPORT INFORMATION
  Report Type: 
  Country: GB (occurrence: GB)
  Receive Date: 20121227
  Receipt Date: 20121227
  Transmission Date: 20130627
  Serious: Yes (Death, Hospitalization)
  Sender: FDA-Public Use
  Company Number: GB-JNJFOC-20121210424

PATIENT
  Age: 85 Year
  Sex: Female
  Weight: 59 kg

DRUGS (10)
  1. XARELTO [Suspect]
     Indication: CEREBROVASCULAR ACCIDENT PROPHYLAXIS
     Route: 048
     Dates: start: 20120810, end: 20120905
  2. XARELTO [Suspect]
     Indication: ATRIAL FIBRILLATION
     Route: 048
     Dates: start: 20120810, end: 20120905
  3. BISOPROLOL [Concomitant]
     Route: 065
  4. CANDESARTAN [Concomitant]
     Route: 065
  5. WARFARIN [Concomitant]
     Route: 065
  6. DIGOXIN [Concomitant]
     Route: 065
  7. OMEPRAZOLE [Concomitant]
     Route: 065
  8. PROTON PUMP INHIBITORS [Concomitant]
     Route: 065
  9. ACETYLSALICYLIC  ACID [Concomitant]
     Route: 065
  10. DABIGATRAN [Concomitant]
     Indication: ATRIAL FIBRILLATION
     Route: 065
     Dates: start: 20120725, end: 20120810

REACTIONS (5)
  - Cerebrovascular accident [Fatal]
  - Upper gastrointestinal haemorrhage [Unknown]
  - Malaise [Not Recovered/Not Resolved]
  - Pallor [Unknown]
  - Faeces discoloured [Unknown]
